FAERS Safety Report 9463533 (Version 2)
Quarter: 2014Q2

REPORT INFORMATION
  Report Type: Spontaneous
  Country: GB (occurrence: GB)
  Receive Date: 20130819
  Receipt Date: 20140403
  Transmission Date: 20141212
  Serious: Yes (Hospitalization)
  Sender: FDA-Public Use
  Company Number: GB-RANBAXY-2013R1-72122

PATIENT
  Age: 88 Year
  Sex: Male
  Weight: 107.2 kg

DRUGS (16)
  1. SERTRALINE [Suspect]
     Indication: DYSTHYMIC DISORDER
     Dosage: 100 MG, QD
     Route: 048
     Dates: start: 2009
  2. ASPIRIN [Suspect]
     Indication: MYOCARDIAL INFARCTION
     Dosage: 100 MG, QD
     Route: 048
     Dates: start: 20130106
  3. NEXIUM [Suspect]
     Indication: PRODUCT USED FOR UNKNOWN INDICATION
     Dosage: 40 MG, QD
     Route: 048
     Dates: start: 20130314
  4. NEXIUM [Suspect]
     Indication: PRODUCT USED FOR UNKNOWN INDICATION
     Dosage: 20 MG, QD
     Route: 048
     Dates: end: 20130313
  5. SINTROM [Suspect]
     Indication: PULMONARY EMBOLISM
     Dosage: UNK
     Route: 048
     Dates: start: 20130109
  6. ATACAND [Concomitant]
     Indication: ESSENTIAL HYPERTENSION
     Route: 065
  7. DAFALGAN [Concomitant]
     Indication: PAIN
     Route: 065
  8. EUTHYROX [Concomitant]
     Indication: HYPOTHYROIDISM
     Route: 065
  9. FLUANXOL [Concomitant]
     Indication: DYSTHYMIC DISORDER
     Route: 065
  10. GLUCOPHAGE [Concomitant]
     Indication: PRODUCT USED FOR UNKNOWN INDICATION
     Dosage: UNK
     Route: 065
     Dates: start: 20130207
  11. IMOVANE [Concomitant]
     Indication: INSOMNIA
     Dosage: UNK
     Route: 065
     Dates: start: 20130210
  12. LAXOBERON [Concomitant]
     Indication: CONSTIPATION
     Dosage: UNK
     Route: 065
     Dates: start: 20130124
  13. REDOXON [Concomitant]
     Indication: HYPOVITAMINOSIS
     Dosage: UNK
     Route: 065
     Dates: start: 20130318
  14. TORASEMIDE [Concomitant]
     Indication: ESSENTIAL HYPERTENSION
     Route: 065
  15. VITAMIN B1 [Concomitant]
     Indication: VITAMIN B COMPLEX DEFICIENCY
     Dosage: UNK
     Route: 065
     Dates: start: 20130111
  16. DANCOR [Concomitant]
     Indication: MYOCARDIAL INFARCTION
     Dosage: UNK
     Route: 005

REACTIONS (1)
  - Petechiae [Recovering/Resolving]
